FAERS Safety Report 5853476-7 (Version None)
Quarter: 2008Q3

REPORT INFORMATION
  Report Type: 
  Country: None (occurrence: None)
  Receive Date: 20080818
  Receipt Date: 20080428
  Transmission Date: 20090109
  Serious: No
  Sender: FDA-Public Use
  Company Number: WAES 0804USA06327

PATIENT
  Age: 64 Year
  Sex: Male

DRUGS (2)
  1. JANUVIA [Suspect]
     Indication: DIABETES MELLITUS
     Dosage: 100 MG DAIILY PO
     Route: 048
     Dates: start: 20080331
  2. THERAPY UNSPECIFIED [Concomitant]

REACTIONS (2)
  - ECZEMA [None]
  - RASH [None]
